FAERS Safety Report 18009118 (Version 1)
Quarter: 2020Q3

REPORT INFORMATION
  Report Type: Spontaneous
  Country: US (occurrence: US)
  Receive Date: 20200710
  Receipt Date: 20200710
  Transmission Date: 20201103
  Serious: Yes (Other)
  Sender: FDA-Public Use
  Company Number: US-SAOL THERAPEUTICS-2020SAO00181

PATIENT
  Age: 32 Year
  Sex: Male

DRUGS (2)
  1. LIORESAL [Suspect]
     Active Substance: BACLOFEN
     Indication: MUSCLE SPASTICITY
     Dosage: 200 ?G, \DAY
     Route: 037
  2. LIORESAL [Suspect]
     Active Substance: BACLOFEN
     Dosage: UNK
     Route: 037

REACTIONS (3)
  - Muscle spasticity [Not Recovered/Not Resolved]
  - Complication associated with device [Not Recovered/Not Resolved]
  - Hypertonia [Not Recovered/Not Resolved]

NARRATIVE: CASE EVENT DATE: 20200629
